FAERS Safety Report 12999334 (Version 1)
Quarter: 2016Q4

REPORT INFORMATION
  Report Type: Spontaneous
  Country: US (occurrence: US)
  Receive Date: 20161205
  Receipt Date: 20161205
  Transmission Date: 20170207
  Serious: Yes (Life-Threatening)
  Sender: FDA-Public Use
  Company Number: US-STANDARD HOMEOPATHIC COMPANY-1060425

PATIENT
  Age: 24 Month
  Sex: Male

DRUGS (1)
  1. COLD N COUGH 4 KIDS [Suspect]
     Active Substance: HOMEOPATHICS
     Indication: NASOPHARYNGITIS
     Route: 048
     Dates: start: 20161110, end: 20161110

REACTIONS (2)
  - Pyrexia [None]
  - Rash [None]

NARRATIVE: CASE EVENT DATE: 20161110
